FAERS Safety Report 16883310 (Version 2)
Quarter: 2022Q3

REPORT INFORMATION
  Report Type: Spontaneous
  Country: RO (occurrence: RO)
  Receive Date: 20191004
  Receipt Date: 20220906
  Transmission Date: 20221027
  Serious: Yes (Death, Life-Threatening, Hospitalization, Other)
  Sender: FDA-Public Use
  Company Number: None

PATIENT
  Age: 66 Year
  Sex: Female
  Weight: 78 kg

DRUGS (24)
  1. LINEZOLID [Suspect]
     Active Substance: LINEZOLID
     Indication: Urinary tract infection enterococcal
     Dosage: 1 DOSAGE FORM, BID (EVERY 12 HOURS)
     Route: 042
     Dates: start: 20170212, end: 20170226
  2. LINEZOLID [Suspect]
     Active Substance: LINEZOLID
     Indication: Enterococcal infection
  3. AMPICILLIN [Suspect]
     Active Substance: AMPICILLIN
     Indication: Urinary tract infection enterococcal
     Dosage: 2 DOSAGE FORM, OD ( EVERY 24 HOUR)
     Route: 042
     Dates: start: 20170203, end: 20170211
  4. AMPICILLIN [Suspect]
     Active Substance: AMPICILLIN
     Indication: Enterococcal infection
  5. CYCLOPHOSPHAMIDE [Suspect]
     Active Substance: CYCLOPHOSPHAMIDE
     Indication: B precursor type acute leukaemia
     Dosage: 680 MILLIGRAM, EVERY 2 CYCLE
     Route: 042
     Dates: start: 20170113, end: 20170115
  6. CYTARABINE [Suspect]
     Active Substance: CYTARABINE
     Indication: B precursor type acute leukaemia
     Dosage: 25 MILLIGRAM, EVERY 2 CYCLE
     Route: 039
     Dates: start: 20170130
  7. CYTARABINE [Suspect]
     Active Substance: CYTARABINE
     Dosage: 25 MILLIGRAM, EVERY 2 CYCLE
     Dates: start: 20170130
  8. CYTARABINE [Suspect]
     Active Substance: CYTARABINE
     Indication: B precursor type acute leukaemia
     Dosage: 4 GRAM, EVERY 2 CYCLE
     Route: 042
     Dates: start: 20170204, end: 20170205
  9. DEXAMETHASONE [Suspect]
     Active Substance: DEXAMETHASONE
     Indication: B precursor type acute leukaemia
     Dosage: 5 DOSAGE FORM, EVERY 1 CYCLE
     Route: 042
     Dates: start: 20170113, end: 20170116
  10. DEXAMETHASONE [Suspect]
     Active Substance: DEXAMETHASONE
     Dosage: 5 DOSAGE FORM, EVERY 1 CYCLE
     Route: 042
     Dates: start: 20170123, end: 20170126
  11. DOXORUBICIN [Suspect]
     Active Substance: DOXORUBICIN
     Indication: B precursor type acute leukaemia
     Dosage: 80 MILLIGRAM, EVERY 2 CYCLE
     Route: 042
     Dates: start: 20170116
  12. IMIPENEM [Suspect]
     Active Substance: IMIPENEM
     Indication: Enterococcal infection
     Dosage: 1 DOSAGE FORM, QID
     Route: 042
     Dates: start: 20170213, end: 20170226
  13. IMIPENEM [Suspect]
     Active Substance: IMIPENEM
     Indication: Urinary tract infection
  14. MEROPENEM [Suspect]
     Active Substance: MEROPENEM
     Indication: Enterococcal infection
     Dosage: 1 DOSAGE FORM, TID (EVERY 8 HOURS)
     Route: 042
     Dates: start: 20170212
  15. MEROPENEM [Suspect]
     Active Substance: MEROPENEM
     Indication: Urinary tract infection enterococcal
  16. METHOTREXATE [Suspect]
     Active Substance: METHOTREXATE
     Indication: B precursor type acute leukaemia
     Dosage: 15 MILLIGRAM, EVERY 2 CYCLE
     Route: 037
     Dates: start: 20170130, end: 2017
  17. METHOTREXATE [Suspect]
     Active Substance: METHOTREXATE
     Dosage: 345 MILLIGRAM, EVERY 2 CYCLE
     Route: 042
     Dates: start: 20170203, end: 2017
  18. METHOTREXATE [Suspect]
     Active Substance: METHOTREXATE
     Dosage: 1375 MILLIGRAM, EVERY 2 CYCLE
     Route: 042
     Dates: start: 20170203, end: 2017
  19. METHYLPREDNISOLONE [Suspect]
     Active Substance: METHYLPREDNISOLONE
     Indication: Product used for unknown indication
     Dosage: 50 MILLIGRAM, BID (EVERY 12 HOURS)
     Route: 042
     Dates: start: 20170203, end: 20170205
  20. RIFAXIMIN [Suspect]
     Active Substance: RIFAXIMIN
     Indication: Product used for unknown indication
     Dosage: 3 DOSAGE FORM, BID (EVERY 12 HOURS)
     Route: 048
     Dates: start: 20170203, end: 20170226
  21. SULFAMETHOXAZOLE\TRIMETHOPRIM [Suspect]
     Active Substance: SULFAMETHOXAZOLE\TRIMETHOPRIM
     Indication: Product used for unknown indication
     Dosage: 4 DOSAGE FORM, EVERY 2 DAY
     Route: 048
     Dates: start: 20170205, end: 20170213
  22. VINCRISTINE [Suspect]
     Active Substance: VINCRISTINE
     Indication: B precursor type acute leukaemia
     Dosage: 2 DOSAGE FORM, EVERY 2 CYCLE
     Route: 042
     Dates: start: 201701, end: 20170123
  23. VINCRISTINE [Suspect]
     Active Substance: VINCRISTINE
     Dosage: 2 DOSAGE FORM, EVERY 2 CYCLE
     Route: 042
     Dates: start: 20170115, end: 201701
  24. Dexmethasone1 % - Eye Drops [Concomitant]
     Indication: Product used for unknown indication
     Dosage: 1 DROP, (ONE DROP PER HOUR IN THE CONJUNCTIVAL SAC, BETWEEN 4 AND 7.0-2.2017)
     Route: 031
     Dates: start: 20170204, end: 20170207

REACTIONS (5)
  - Acute hepatic failure [Fatal]
  - Hepatic infarction [Fatal]
  - Aplasia [Recovering/Resolving]
  - Clostridium difficile colitis [Recovered/Resolved]
  - Hepatotoxicity [Not Recovered/Not Resolved]

NARRATIVE: CASE EVENT DATE: 20170101
